FAERS Safety Report 15936992 (Version 3)
Quarter: 2019Q2

REPORT INFORMATION
  Report Type: Spontaneous
  Country: PS (occurrence: PS)
  Receive Date: 20190208
  Receipt Date: 20190617
  Transmission Date: 20190711
  Serious: Yes (Death, Life-Threatening, Hospitalization, Disabling, Other)
  Sender: FDA-Public Use
  Company Number: PS-SA-2018SA393003

PATIENT
  Age: 3 Year
  Sex: Male
  Weight: 16 kg

DRUGS (1)
  1. MYOZYME [Suspect]
     Active Substance: ALGLUCOSIDASE ALFA
     Indication: GLYCOGEN STORAGE DISEASE TYPE II
     Dosage: 20 MG/KG, QOW
     Route: 041
     Dates: start: 201503, end: 20181129

REACTIONS (9)
  - Respiratory failure [Fatal]
  - Respiratory disorder [Fatal]
  - Disease progression [Fatal]
  - Respiratory distress [Unknown]
  - Post procedural discharge [Unknown]
  - Pyrexia [Unknown]
  - Cough [Unknown]
  - Cyanosis [Unknown]
  - Pneumonia [Unknown]

NARRATIVE: CASE EVENT DATE: 20171130
